FAERS Safety Report 25437533 (Version 1)
Quarter: 2025Q2

REPORT INFORMATION
  Report Type: Spontaneous
  Country: US (occurrence: US)
  Receive Date: 20250616
  Receipt Date: 20250616
  Transmission Date: 20250717
  Serious: No
  Sender: ANI
  Company Number: US-ANIPHARMA-023220

PATIENT
  Age: 67 Year
  Sex: Male
  Weight: 99.79 kg

DRUGS (3)
  1. SODIUM POLYSTYRENE SULFONATE [Suspect]
     Active Substance: SODIUM POLYSTYRENE SULFONATE
     Indication: Blood potassium increased
     Dates: start: 2025, end: 20250609
  2. Monsanto [Concomitant]
     Indication: Product used for unknown indication
  3. SODIUM POLYSTYRENE SULFONATE [Suspect]
     Active Substance: SODIUM POLYSTYRENE SULFONATE
     Indication: Blood potassium increased
     Dates: start: 2025, end: 20250609

REACTIONS (3)
  - Diarrhoea [Recovering/Resolving]
  - Product solubility abnormal [Unknown]
  - Poor quality product administered [Unknown]

NARRATIVE: CASE EVENT DATE: 20250601
